FAERS Safety Report 25315791 (Version 2)
Quarter: 2025Q2

REPORT INFORMATION
  Report Type: Report from Study
  Country: US (occurrence: US)
  Receive Date: 20250515
  Receipt Date: 20250522
  Transmission Date: 20250717
  Serious: Yes (Death, Other)
  Sender: ABBVIE
  Company Number: US-ABBVIE-6279308

PATIENT
  Age: 78 Year
  Sex: Female

DRUGS (1)
  1. HUMIRA [Suspect]
     Active Substance: ADALIMUMAB
     Indication: Crohn^s disease
     Dosage: CITRATE FREE ??FORM STRENGTH UNITS: 40 MILLIGRAM
     Route: 058
     Dates: end: 20250327

REACTIONS (5)
  - Dementia Alzheimer^s type [Fatal]
  - Insomnia [Not Recovered/Not Resolved]
  - Chronic kidney disease [Fatal]
  - Fatigue [Not Recovered/Not Resolved]
  - Cardiac failure [Unknown]

NARRATIVE: CASE EVENT DATE: 20240101
